FAERS Safety Report 9981390 (Version 2)
Quarter: 2014Q1

REPORT INFORMATION
  Report Type: Spontaneous
  Country: JP (occurrence: JP)
  Receive Date: 20140307
  Receipt Date: 20140321
  Transmission Date: 20141002
  Serious: No
  Sender: FDA-Public Use
  Company Number: JP-JNJFOC-20140301518

PATIENT
  Age: 81 Year
  Sex: Female
  Weight: 61 kg

DRUGS (9)
  1. XARELTO [Suspect]
     Indication: ANTICOAGULANT THERAPY
     Route: 048
     Dates: start: 20140118, end: 20140224
  2. NU-LOTAN [Concomitant]
     Indication: HYPERTENSION
     Route: 048
     Dates: start: 20100224
  3. DIART [Concomitant]
     Indication: POLYURIA
     Route: 048
     Dates: start: 20100212
  4. MAINTATE [Concomitant]
     Indication: HEART RATE ABNORMAL
     Route: 048
     Dates: start: 20100330
  5. LASIX [Concomitant]
     Indication: POLYURIA
     Route: 048
     Dates: start: 20120515
  6. HERBESSER R [Concomitant]
     Indication: HEART RATE ABNORMAL
     Route: 048
     Dates: start: 20100224
  7. DIGOXIN [Concomitant]
     Indication: HEART RATE ABNORMAL
     Route: 048
     Dates: start: 20100316
  8. ALOSITOL [Concomitant]
     Indication: BLOOD URIC ACID DECREASED
     Route: 048
     Dates: start: 20110125
  9. SPIRIVA [Concomitant]
     Indication: DYSPNOEA
     Route: 055
     Dates: start: 20120515

REACTIONS (1)
  - Oedema [Not Recovered/Not Resolved]
